FAERS Safety Report 6997499-3 (Version None)
Quarter: 2010Q3

REPORT INFORMATION
  Report Type: 
  Country: None (occurrence: None)
  Receive Date: 20100918
  Receipt Date: 20091022
  Transmission Date: 20110219
  Serious: No
  Sender: FDA-Public Use
  Company Number: US-WYE-H11820709

PATIENT
  Sex: Female
  Weight: 57.2 kg

DRUGS (5)
  1. PRISTIQ [Suspect]
     Indication: ANXIETY
     Route: 048
     Dates: start: 20091021
  2. PRISTIQ [Suspect]
     Indication: DEPRESSION
  3. XANAX [Concomitant]
  4. VITAMIN TAB [Concomitant]
  5. COPAXONE [Concomitant]

REACTIONS (2)
  - MYDRIASIS [None]
  - VISION BLURRED [None]
